FAERS Safety Report 6216296-X (Version None)
Quarter: 2009Q2

REPORT INFORMATION
  Report Type: 
  Country: None (occurrence: None)
  Receive Date: 20090603
  Receipt Date: 20090603
  Transmission Date: 20091009
  Serious: Yes (Hospitalization)
  Sender: FDA-Public Use
  Company Number: None

PATIENT
  Sex: Male
  Weight: 75.8 kg

DRUGS (3)
  1. ERBITUX [Suspect]
     Dosage: 2247.5 MG
  2. TAXOL [Suspect]
     Dosage: 1151 MG
  3. CARBOPLATIN [Suspect]
     Dosage: 2084 MG

REACTIONS (1)
  - ATRIAL FIBRILLATION [None]
